FAERS Safety Report 7880412-4 (Version None)
Quarter: 2011Q4

REPORT INFORMATION
  Report Type: 
  Country: None (occurrence: None)
  Receive Date: 20111101
  Receipt Date: 20111024
  Transmission Date: 20120403
  Serious: Yes (Hospitalization, Other)
  Sender: FDA-Public Use
  Company Number: PHHY2011CA84935

PATIENT
  Sex: Female

DRUGS (6)
  1. CRESTOR [Concomitant]
     Dosage: UNK UKN, UNK
  2. ZOLEDRONOC ACID [Suspect]
     Dosage: UNK UKN, UNK
     Route: 042
     Dates: start: 20101104
  3. ZOLEDRONOC ACID [Suspect]
     Indication: OSTEOPOROSIS
     Dosage: UNK UKN, UNK
     Route: 042
     Dates: start: 20090713
  4. ASAPHEN [Concomitant]
     Dosage: UNK UKN, UNK
  5. CALCIUM WITH VITAMIN D [Concomitant]
     Dosage: 400 UKN, BID
  6. VITALUX [Concomitant]
     Dosage: UNK UKN, UNK

REACTIONS (8)
  - CHILLS [None]
  - ARTHRALGIA [None]
  - MUSCLE SPASMS [None]
  - GAIT DISTURBANCE [None]
  - MACULAR DEGENERATION [None]
  - NERVE INJURY [None]
  - PAIN IN EXTREMITY [None]
  - ASTHENIA [None]
